FAERS Safety Report 18239114 (Version 1)
Quarter: 2020Q3

REPORT INFORMATION
  Report Type: Spontaneous
  Country: BR (occurrence: BR)
  Receive Date: 20200907
  Receipt Date: 20200907
  Transmission Date: 20201103
  Serious: Yes (Other)
  Sender: FDA-Public Use
  Company Number: BR-AMGEN-BRASP2020142472

PATIENT

DRUGS (8)
  1. PEGINTERFERON ALFA?2A. [Concomitant]
     Active Substance: PEGINTERFERON ALFA-2A
     Indication: CHRONIC HEPATITIS C
     Dosage: 180 MICROGRAM, QWK FOR 48 WEEKS
     Route: 058
  2. RIBAVIRIN. [Concomitant]
     Active Substance: RIBAVIRIN
     Indication: CHRONIC HEPATITIS C
     Dosage: 1250 MILLIGRAM, QD FOR 48 WEEKS (FOR PATIENTS WEIGHING }= 75 KG)
  3. FILGRASTIM [Suspect]
     Active Substance: FILGRASTIM
     Indication: GRANULOCYTE COUNT
     Dosage: 300 MICROGRAM 1 OR 2 TIMES PER WEEK
     Route: 058
  4. PEGINTERFERON ALFA?2B [Concomitant]
     Active Substance: PEGINTERFERON ALFA-2B
     Indication: CHRONIC HEPATITIS C
     Dosage: 1.5 MICROGRAM/KILOGRAM, QWK FOR 48 WEEKS
  5. ERYTHROPOIETIN [Concomitant]
     Active Substance: ERYTHROPOIETIN
     Indication: ANAEMIA
  6. PEGINTERFERON ALFA?2A. [Concomitant]
     Active Substance: PEGINTERFERON ALFA-2A
     Dosage: UNK
     Route: 058
  7. PEGINTERFERON ALFA?2B [Concomitant]
     Active Substance: PEGINTERFERON ALFA-2B
     Dosage: UNK
  8. RIBAVIRIN. [Concomitant]
     Active Substance: RIBAVIRIN
     Dosage: 1000 MILLIGRAM FOR 48 WEEKS (FOR PATIENTS WEIGHING { 75 KG)

REACTIONS (7)
  - Hypersensitivity [Unknown]
  - Off label use [Unknown]
  - Vasculitis [Unknown]
  - Fatigue [Unknown]
  - Anaemia [Unknown]
  - Drug intolerance [Unknown]
  - Hepatic failure [Unknown]
